FAERS Safety Report 8387661-X (Version None)
Quarter: 2012Q2

REPORT INFORMATION
  Report Type: 
  Country: None (occurrence: None)
  Receive Date: 20120525
  Receipt Date: 20120521
  Transmission Date: 20120825
  Serious: Yes (Death)
  Sender: FDA-Public Use
  Company Number: GB-PFIZER INC-2012124443

PATIENT
  Age: 40 Year
  Sex: Female
  Weight: 75.9 kg

DRUGS (7)
  1. LEVOTHYROXINE [Concomitant]
     Indication: PRIMARY HYPOTHYROIDISM
  2. PREMPAK-C [Concomitant]
     Indication: BLOOD LUTEINISING HORMONE DECREASED
     Dosage: UNK
     Dates: start: 19940701
  3. LEVOTHYROXINE [Concomitant]
     Indication: BLOOD THYROID STIMULATING HORMONE DECREASED
     Dosage: UNK
     Dates: start: 19940701
  4. PREMPAK-C [Concomitant]
     Indication: BLOOD FOLLICLE STIMULATING HORMONE DECREASED
  5. PREMPAK-C [Concomitant]
     Indication: HYPOGONADISM FEMALE
  6. SOMATROPIN [Suspect]
     Indication: HYPOPITUITARISM
     Dosage: 0.27 MG, DAILY, 7 INJECTIONS A WEEK
     Dates: start: 19980820
  7. HYDROCORTISONE [Concomitant]
     Indication: BLOOD CORTICOTROPHIN DECREASED
     Dosage: UNK
     Dates: start: 19940701

REACTIONS (1)
  - DEATH [None]
